FAERS Safety Report 7372817-5 (Version None)
Quarter: 2011Q1

REPORT INFORMATION
  Report Type: 
  Country: None (occurrence: None)
  Receive Date: 20110324
  Receipt Date: 20110321
  Transmission Date: 20110831
  Serious: Yes (Hospitalization)
  Sender: FDA-Public Use
  Company Number: FR-ROCHE-766783

PATIENT
  Sex: Male

DRUGS (4)
  1. ROCEPHIN [Suspect]
     Route: 042
     Dates: start: 20110222
  2. OFLOCET [Suspect]
     Route: 065
     Dates: start: 20110223
  3. AVASTIN [Suspect]
     Indication: COLON CANCER
     Dosage: FREQUENCY: EVERY 15 DAYS FORM: INFUSION
     Route: 042
     Dates: start: 20101022, end: 20110216
  4. CIFLOX [Suspect]
     Route: 042
     Dates: start: 20110222, end: 20110223

REACTIONS (1)
  - PERIPHERAL ISCHAEMIA [None]
